FAERS Safety Report 18769988 (Version 2)
Quarter: 2021Q1

REPORT INFORMATION
  Report Type: Spontaneous
  Country: DE (occurrence: DE)
  Receive Date: 20210121
  Receipt Date: 20210208
  Transmission Date: 20210419
  Serious: Yes (Other)
  Sender: FDA-Public Use
  Company Number: DE-TEVA-2021-DE-1870407

PATIENT
  Sex: Female

DRUGS (2)
  1. DICLOFENAC [Suspect]
     Active Substance: DICLOFENAC
     Indication: COLITIS ULCERATIVE
     Dosage: 50 MG,THERAPY START DATE AND END DATE: ASKED BUT UNKNOWN
     Route: 065
  2. DICLOFENAC [Suspect]
     Active Substance: DICLOFENAC
     Indication: POLYARTHRITIS

REACTIONS (3)
  - Drug effect less than expected [Unknown]
  - Colitis [Unknown]
  - Polyarthritis [Unknown]
